FAERS Safety Report 12109474 (Version 1)
Quarter: 2016Q1

REPORT INFORMATION
  Report Type: Spontaneous
  Country: US (occurrence: None)
  Receive Date: 20160223
  Receipt Date: 20160223
  Transmission Date: 20160526
  Serious: No
  Sender: FDA-Public Use
  Company Number: None

PATIENT
  Age: 75 Year
  Sex: Female

DRUGS (1)
  1. XALKORI [Suspect]
     Active Substance: CRIZOTINIB
     Indication: LUNG NEOPLASM MALIGNANT
     Route: 048
     Dates: start: 20150514

REACTIONS (7)
  - Balance disorder [None]
  - Muscular weakness [None]
  - Abdominal discomfort [None]
  - Gait disturbance [None]
  - Dysstasia [None]
  - Asthenia [None]
  - Dysgeusia [None]

NARRATIVE: CASE EVENT DATE: 201512
